FAERS Safety Report 12715568 (Version 1)
Quarter: 2016Q3

REPORT INFORMATION
  Report Type: Spontaneous
  Country: US (occurrence: US)
  Receive Date: 20160906
  Receipt Date: 20160906
  Transmission Date: 20161109
  Serious: Yes (Other)
  Sender: FDA-Public Use
  Company Number: US-BRISTOL-MYERS SQUIBB COMPANY-BMS-2016-070945

PATIENT
  Age: 54 Year
  Sex: Male
  Weight: 71.66 kg

DRUGS (1)
  1. OPDIVO [Suspect]
     Active Substance: NIVOLUMAB
     Indication: MALIGNANT GLIOMA
     Dosage: 3 MG/KG, Q2WK
     Route: 042
     Dates: start: 20160720

REACTIONS (2)
  - Hernia [Unknown]
  - Product use issue [Unknown]
